FAERS Safety Report 10244185 (Version 2)
Quarter: 2014Q2

REPORT INFORMATION
  Report Type: Report from Study
  Country: DE (occurrence: DE)
  Receive Date: 20140618
  Receipt Date: 20140625
  Transmission Date: 20141212
  Serious: Yes (Hospitalization)
  Sender: FDA-Public Use
  Company Number: DE-INCYTE CORPORATION-2014IN001639

PATIENT
  Sex: Female
  Weight: 59 kg

DRUGS (5)
  1. INCB018424 [Suspect]
     Indication: MYELOFIBROSIS
     Dosage: 20 MG, 4 DF 5 MG PER DAY
     Route: 048
     Dates: start: 20140123, end: 20140305
  2. INCB018424 [Suspect]
     Dosage: 30 MG, PER DAY (2 DF 15 MG PER DAY)
     Route: 048
     Dates: start: 20140306, end: 20140425
  3. INCB018424 [Suspect]
     Dosage: 1 DF 15 MG PER DAY
     Route: 048
     Dates: start: 20140425, end: 20140425
  4. VALSARTAN [Concomitant]
     Indication: HYPERTENSION
     Dosage: 40 MG, PER DAY
     Dates: start: 20130226
  5. BISOPROLOL [Concomitant]
     Indication: HYPERTENSION
     Dosage: UNK
     Dates: start: 20130226

REACTIONS (1)
  - Dyspnoea [Recovered/Resolved]
